FAERS Safety Report 14642273 (Version 3)
Quarter: 2018Q2

REPORT INFORMATION
  Report Type: Spontaneous
  Country: JP (occurrence: JP)
  Receive Date: 20180315
  Receipt Date: 20180601
  Transmission Date: 20180711
  Serious: Yes (Hospitalization, Other)
  Sender: FDA-Public Use
  Company Number: JP-SA-2018SA034456

PATIENT
  Age: 64 Year
  Sex: Female
  Weight: 76.6 kg

DRUGS (16)
  1. MYSLEE [Suspect]
     Active Substance: ZOLPIDEM TARTRATE
     Indication: INSOMNIA
     Dosage: 10 MG, QD
     Route: 048
     Dates: start: 20150616
  2. GATIFLO [Suspect]
     Active Substance: GATIFLOXACIN
     Indication: DRY EYE
     Dosage: 4 GTT DROPS, QD
     Route: 047
     Dates: start: 20170424
  3. TAGAMET [Suspect]
     Active Substance: CIMETIDINE
     Indication: CHEST PAIN
     Dosage: 600 MG, QD
     Route: 048
     Dates: start: 20170920
  4. JZOLOFT [Suspect]
     Active Substance: SERTRALINE HYDROCHLORIDE
     Indication: PANIC DISORDER
     Dosage: 75 MG, QD
     Route: 048
     Dates: start: 20140805
  5. DESYREL [Suspect]
     Active Substance: TRAZODONE HYDROCHLORIDE
     Indication: PANIC DISORDER
     Dosage: 100 MG, QD
     Route: 048
     Dates: start: 2013
  6. LEXOTAN [Suspect]
     Active Substance: BROMAZEPAM
     Indication: PANIC DISORDER
     Route: 048
     Dates: start: 20160510
  7. LANSOPRAZOLE. [Suspect]
     Active Substance: LANSOPRAZOLE
     Indication: CHRONIC GASTRITIS
     Dosage: 30 MG,QD
     Route: 048
     Dates: start: 20160705
  8. METGLUCO [Suspect]
     Active Substance: METFORMIN HYDROCHLORIDE
     Indication: TYPE 2 DIABETES MELLITUS
     Dosage: 750 MG, QD
     Route: 048
     Dates: start: 20170821
  9. ALLEGRA [Suspect]
     Active Substance: FEXOFENADINE HYDROCHLORIDE
     Indication: NASOPHARYNGITIS
     Dosage: 120 MG, QD
     Route: 048
     Dates: start: 20180109
  10. DEPAS [ETIZOLAM] [Suspect]
     Active Substance: ETIZOLAM
     Indication: PANIC DISORDER
     Dosage: 1.5 MG, QD
     Route: 048
     Dates: start: 20150714
  11. WYPAX [Suspect]
     Active Substance: LORAZEPAM
     Indication: PANIC DISORDER
     Dosage: 1.5 MG, QD
     Route: 048
     Dates: start: 20150616
  12. NITROPEN [Suspect]
     Active Substance: NITROGLYCERIN
     Indication: CHEST PAIN
     Dosage: 0.3 MG, QD
     Route: 048
     Dates: start: 20141121
  13. CALONAL [Suspect]
     Active Substance: ACETAMINOPHEN
     Indication: NASOPHARYNGITIS
     Dosage: 900 MG, QD
     Route: 048
     Dates: start: 20180109
  14. LIVOSTIN [Suspect]
     Active Substance: LEVOCABASTINE HYDROCHLORIDE
     Indication: CONJUNCTIVITIS ALLERGIC
     Dosage: 4 GTT DROPS, QD
     Route: 047
     Dates: start: 20170523
  15. HYALEIN MINI [Suspect]
     Active Substance: HYALURONATE SODIUM
     Indication: DRY EYE
     Dosage: 4 DF, QD
     Route: 047
     Dates: start: 20161124
  16. MOHRUS L [Suspect]
     Active Substance: KETOPROFEN
     Indication: PERIARTHRITIS
     Route: 062
     Dates: start: 20151125

REACTIONS (5)
  - Suicide attempt [Recovered/Resolved with Sequelae]
  - Hypoglycaemia [Recovered/Resolved]
  - Intentional overdose [Unknown]
  - Hypoglycaemic encephalopathy [Recovered/Resolved with Sequelae]
  - Pneumonia aspiration [Recovered/Resolved]

NARRATIVE: CASE EVENT DATE: 20180131
